FAERS Safety Report 4345992-4 (Version None)
Quarter: 2004Q2

REPORT INFORMATION
  Report Type: 
  Country: None (occurrence: None)
  Receive Date: 20040420
  Receipt Date: 20040405
  Transmission Date: 20050107
  Serious: Yes (Life-Threatening)
  Sender: FDA-Public Use
  Company Number: 2004-UK-00335UK

PATIENT
  Age: 53 Year
  Sex: Male

DRUGS (12)
  1. MOBIC [Suspect]
     Indication: BACK PAIN
     Dosage: 15 MG PO
     Route: 048
     Dates: end: 20030101
  2. MOBIC [Suspect]
     Indication: BACK PAIN
     Dosage: 15 MG PO
     Route: 048
     Dates: end: 20040303
  3. ASPIRIN [Suspect]
     Indication: CEREBRAL ISCHAEMIA
     Dosage: 75 MG PO
     Route: 048
     Dates: end: 20030101
  4. ASPIRIN [Suspect]
     Indication: MYOCARDIAL INFARCTION
     Dosage: 75 MG PO
     Route: 048
     Dates: end: 20030101
  5. ASPIRIN [Suspect]
     Indication: PROPHYLAXIS
     Dosage: 75 MG PO
     Route: 048
     Dates: end: 20030101
  6. ASPIRIN [Suspect]
     Indication: CEREBRAL ISCHAEMIA
     Dosage: 75 MG PO
     Route: 048
     Dates: end: 20040303
  7. ASPIRIN [Suspect]
     Indication: MYOCARDIAL INFARCTION
     Dosage: 75 MG PO
     Route: 048
     Dates: end: 20040303
  8. ASPIRIN [Suspect]
     Indication: PROPHYLAXIS
     Dosage: 75 MG PO
     Route: 048
     Dates: end: 20040303
  9. CARBAMAZEPINE [Concomitant]
  10. LOFEPRAMINE (LOFEPRAMINE) [Concomitant]
  11. RISPERDAL [Concomitant]
  12. TYLEX (TYLEX) [Concomitant]

REACTIONS (6)
  - DUODENAL ULCER [None]
  - DUODENITIS [None]
  - GASTRIC ULCER [None]
  - GASTRITIS [None]
  - HAEMOGLOBIN DECREASED [None]
  - VITAMIN B12 DEFICIENCY [None]
